FAERS Safety Report 11055019 (Version 1)
Quarter: 2015Q2

REPORT INFORMATION
  Report Type: Spontaneous
  Country: US (occurrence: None)
  Receive Date: 20150421
  Receipt Date: 20150421
  Transmission Date: 20150821
  Serious: No
  Sender: FDA-Public Use
  Company Number: None

PATIENT
  Age: 69 Year
  Sex: Female
  Weight: 99.79 kg

DRUGS (16)
  1. OMEPRAZOLE. [Concomitant]
     Active Substance: OMEPRAZOLE
  2. BACLOFEN. [Suspect]
     Active Substance: BACLOFEN
     Route: 048
     Dates: start: 20141023, end: 20150310
  3. CLONIDINE. [Concomitant]
     Active Substance: CLONIDINE
  4. CHLORDIAZEPOXIDE [Concomitant]
     Active Substance: CHLORDIAZEPOXIDE
  5. MUCINEX EXPECTORANT [Concomitant]
  6. PRAVASTATIN [Concomitant]
     Active Substance: PRAVASTATIN\PRAVASTATIN SODIUM
  7. LISINOPRIL. [Concomitant]
     Active Substance: LISINOPRIL
  8. HYDROCHLOROT [Concomitant]
     Active Substance: HYDROCHLOROTHIAZIDE
  9. SINGULAIR [Concomitant]
     Active Substance: MONTELUKAST SODIUM
  10. METFORMIN [Concomitant]
     Active Substance: METFORMIN HYDROCHLORIDE
  11. AMLODIPINE [Concomitant]
     Active Substance: AMLODIPINE BESYLATE
  12. GAS-X [Concomitant]
     Active Substance: DIMETHICONE
  13. DITROPAN XL [Concomitant]
     Active Substance: OXYBUTYNIN CHLORIDE
  14. BENADRYL [Concomitant]
     Active Substance: DIPHENHYDRAMINE HYDROCHLORIDE
  15. COQ10 [Concomitant]
     Active Substance: UBIDECARENONE
  16. CENTRUM FOR WOMEN [Concomitant]

REACTIONS (6)
  - Activities of daily living impaired [None]
  - Fatigue [None]
  - Pollakiuria [None]
  - Impaired driving ability [None]
  - Muscular weakness [None]
  - Ear infection [None]

NARRATIVE: CASE EVENT DATE: 20141023
